FAERS Safety Report 9660799 (Version 1)
Quarter: 2013Q4

REPORT INFORMATION
  Report Type: Spontaneous
  Country: US (occurrence: US)
  Receive Date: 20131031
  Receipt Date: 20131031
  Transmission Date: 20140711
  Serious: Yes (Other)
  Sender: FDA-Public Use
  Company Number: US-BAXTER-2013BAX042006

PATIENT
  Age: 27 Year
  Sex: Female
  Weight: 51 kg

DRUGS (15)
  1. VANCOMYCIN INJECTION, USP [Suspect]
     Indication: ENDOCARDITIS
     Route: 042
  2. GENTAMICIN SULFATE IN 0.9% SODIUM CHLORIDE INJECTION [Suspect]
     Indication: ENDOCARDITIS
     Route: 042
  3. SEVOFLURANE, USP [Suspect]
     Indication: GENERAL ANAESTHESIA
     Dosage: 0.6 TO 0.8% END-TIDAL CONCENTRATIONS
  4. MIDAZOLAM [Suspect]
     Indication: MAINTENANCE OF ANAESTHESIA
     Route: 042
  5. MIDAZOLAM [Suspect]
     Indication: SEDATION
  6. AMPICILLIN [Suspect]
     Indication: ENDOCARDITIS
     Route: 042
  7. SULBACTAM [Suspect]
     Indication: ENDOCARDITIS
     Route: 042
  8. CIPROFLOXACIN [Suspect]
     Indication: ENDOCARDITIS
     Route: 042
  9. PROPOFOL [Suspect]
     Indication: INDUCTION OF ANAESTHESIA
     Route: 065
  10. SUCCINYLCHOLINE [Suspect]
     Indication: INDUCTION OF ANAESTHESIA
     Route: 065
  11. FENTANYL [Suspect]
     Indication: MAINTENANCE OF ANAESTHESIA
     Route: 065
  12. ROCURONIUM [Suspect]
     Indication: NEUROMUSCULAR BLOCKADE
     Route: 065
  13. ONDANSETRON [Suspect]
     Indication: PROPHYLAXIS OF NAUSEA AND VOMITING
     Route: 065
  14. ONDANSETRON [Suspect]
     Indication: PROPHYLAXIS OF NAUSEA AND VOMITING
  15. BETAMETHASONE [Suspect]
     Indication: CONGENITAL ABNORMALITY PROPHYLAXIS
     Route: 030

REACTIONS (4)
  - Exposure during pregnancy [Recovered/Resolved]
  - Premature labour [Recovered/Resolved]
  - Premature delivery [Recovered/Resolved]
  - Premature separation of placenta [Recovered/Resolved]
